FAERS Safety Report 5104276-7 (Version None)
Quarter: 2006Q3

REPORT INFORMATION
  Report Type: 
  Country: None (occurrence: None)
  Receive Date: 20060912
  Receipt Date: 20060912
  Transmission Date: 20061208
  Serious: Yes (Hospitalization)
  Sender: FDA-Public Use
  Company Number: None

PATIENT
  Sex: Male

DRUGS (10)
  1. HUMULIN 70/30 [Suspect]
     Indication: DIABETES MELLITUS
     Dosage: 18 UNITS / 28 UNITS AM/PM SQ
     Route: 058
  2. REGULAR INSULIN [Suspect]
     Indication: DIABETES MELLITUS
     Dosage: SLIDING SCALE PRN SQ
     Route: 058
  3. APAP TAB [Concomitant]
  4. AMYLASE/LIPASE/PROTEASE [Concomitant]
  5. LORAZEPAM [Concomitant]
  6. OLANZAPINE INJECTION [Concomitant]
  7. OLANZAPINE DISINTEGRATING TABLETS [Concomitant]
  8. PHENYTOIN [Concomitant]
  9. SERTRALINE [Concomitant]
  10. THIAMINE [Concomitant]

REACTIONS (2)
  - BLOOD GLUCOSE DECREASED [None]
  - CONVULSION [None]
